FAERS Safety Report 15435224 (Version 6)
Quarter: 2019Q1

REPORT INFORMATION
  Report Type: Report from Study
  Country: RO (occurrence: RO)
  Receive Date: 20180927
  Receipt Date: 20190116
  Transmission Date: 20190417
  Serious: Yes (Other)
  Sender: FDA-Public Use
  Company Number: RO-PFIZER INC-2018385602

PATIENT
  Age: 5 Year
  Sex: Male

DRUGS (2)
  1. CONVULEX [VALPROIC ACID] [Suspect]
     Active Substance: VALPROIC ACID
     Indication: EPILEPSY
     Dosage: 50 MILLIGRAM/KILOGRAM, DAILY
     Dates: start: 201409
  2. LEVETIRACETAM. [Suspect]
     Active Substance: LEVETIRACETAM
     Indication: EPILEPSY
     Dosage: 60 MILLIGRAM/KILOGRAM, DAILY
     Dates: start: 201405, end: 201507

REACTIONS (10)
  - Gait disturbance [Unknown]
  - Condition aggravated [Unknown]
  - Fall [Unknown]
  - Ataxia [Unknown]
  - Partial seizures [Unknown]
  - Leukoencephalopathy [Unknown]
  - Autism spectrum disorder [Unknown]
  - Clumsiness [Unknown]
  - Epilepsy [Unknown]
  - Psychomotor disadaptation syndrome [Unknown]

NARRATIVE: CASE EVENT DATE: 20140618
